FAERS Safety Report 13522713 (Version 7)
Quarter: 2017Q3

REPORT INFORMATION
  Report Type: Report from Study
  Country: US (occurrence: US)
  Receive Date: 20170508
  Receipt Date: 20170904
  Transmission Date: 20171127
  Serious: Yes (Hospitalization, Other)
  Sender: FDA-Public Use
  Company Number: US-JNJFOC-20170505777

PATIENT
  Age: 70 Year
  Sex: Male

DRUGS (22)
  1. HYDROCHLOROTHIAZIDE. [Concomitant]
     Active Substance: HYDROCHLOROTHIAZIDE
  2. VASOTEC [Concomitant]
     Active Substance: ENALAPRIL MALEATE
  3. NOVOLOG [Concomitant]
     Active Substance: INSULIN ASPART
  4. SENOKOT [Concomitant]
     Active Substance: SENNOSIDES
  5. DANTRIUM [Concomitant]
     Active Substance: DANTROLENE SODIUM
  6. OXYCODONE [Concomitant]
     Active Substance: OXYCODONE
  7. BACTRIM [Concomitant]
     Active Substance: SULFAMETHOXAZOLE\TRIMETHOPRIM
  8. HUMULIN NOS [Concomitant]
     Active Substance: INSULIN HUMAN
  9. ZOFRAN [Concomitant]
     Active Substance: ONDANSETRON HYDROCHLORIDE
  10. NEURONTIN [Concomitant]
     Active Substance: GABAPENTIN
  11. LIORESAL [Concomitant]
     Active Substance: BACLOFEN
  12. DIFLUCAN [Concomitant]
     Active Substance: FLUCONAZOLE
  13. ROXICODONE [Concomitant]
     Active Substance: OXYCODONE HYDROCHLORIDE
  14. COLACE [Concomitant]
     Active Substance: DOCUSATE SODIUM
  15. VALIUM [Concomitant]
     Active Substance: DIAZEPAM
  16. IMBRUVICA [Suspect]
     Active Substance: IBRUTINIB
     Indication: CHRONIC LYMPHOCYTIC LEUKAEMIA RECURRENT
     Route: 048
     Dates: start: 20170424, end: 20170429
  17. IMBRUVICA [Suspect]
     Active Substance: IBRUTINIB
     Indication: CHRONIC LYMPHOCYTIC LEUKAEMIA RECURRENT
     Route: 048
     Dates: start: 20170412
  18. ULTRAM [Concomitant]
     Active Substance: TRAMADOL HYDROCHLORIDE
  19. LOVENOX [Concomitant]
     Active Substance: ENOXAPARIN SODIUM
  20. LOPRESSOR [Concomitant]
     Active Substance: METOPROLOL TARTRATE
  21. COMPAZINE [Concomitant]
     Active Substance: PROCHLORPERAZINE MALEATE
  22. ZOVIRAX [Concomitant]
     Active Substance: ACYCLOVIR

REACTIONS (10)
  - Contusion [Recovering/Resolving]
  - Hip surgery [Not Recovered/Not Resolved]
  - Cheilitis [Not Recovered/Not Resolved]
  - Haemoglobin decreased [Unknown]
  - Stomatitis [Not Recovered/Not Resolved]
  - Pneumonia [Not Recovered/Not Resolved]
  - Epistaxis [Recovered/Resolved]
  - Musculoskeletal stiffness [Not Recovered/Not Resolved]
  - Pruritus [Recovering/Resolving]
  - Swelling [Recovering/Resolving]

NARRATIVE: CASE EVENT DATE: 2017
